FAERS Safety Report 5076436-5 (Version None)
Quarter: 2006Q3

REPORT INFORMATION
  Report Type: 
  Country: None (occurrence: None)
  Receive Date: 20060725
  Receipt Date: 20060404
  Transmission Date: 20061208
  Serious: No
  Sender: FDA-Public Use
  Company Number: 200612230BWH

PATIENT
  Age: 56 Year
  Sex: Male

DRUGS (6)
  1. NEXAVAR [Suspect]
     Indication: METASTATIC RENAL CELL CARCINOMA
     Dosage: 400 MG, BID, ORAL
     Route: 048
     Dates: start: 20060301
  2. GLIPIZIDE [Concomitant]
  3. TRIAMTERENE [Concomitant]
  4. NORVASC [Concomitant]
  5. SYNTHROID [Concomitant]
  6. ATENOLOL [Concomitant]

REACTIONS (2)
  - BLOOD GLUCOSE DECREASED [None]
  - COUGH [None]
